FAERS Safety Report 21584414 (Version 1)
Quarter: 2022Q4

REPORT INFORMATION
  Report Type: Spontaneous
  Country: FR (occurrence: FR)
  Receive Date: 20221111
  Receipt Date: 20221111
  Transmission Date: 20230113
  Serious: Yes (Other)
  Sender: FDA-Public Use
  Company Number: FR-BAXTER-2022BAX023953

PATIENT
  Age: 3 Year

DRUGS (4)
  1. IFOSFAMIDE [Suspect]
     Active Substance: IFOSFAMIDE
     Indication: Alveolar rhabdomyosarcoma
     Dosage: SIX COURSES WITH AN INTERVAL OF 3 WEEKS BETWEEN EACH COURSE
     Route: 065
  2. VINCRISTINE [Suspect]
     Active Substance: VINCRISTINE
     Indication: Alveolar rhabdomyosarcoma
     Dosage: SIX COURSES WITH AN INTERVAL OF 3 WEEKS BETWEEN EACH COURSE
     Route: 065
  3. CACTINOMYCIN [Suspect]
     Active Substance: CACTINOMYCIN
     Indication: Alveolar rhabdomyosarcoma
     Dosage: SIX COURSES WITH AN INTERVAL OF 3 WEEKS BETWEEN EACH COURSE
     Route: 065
  4. DACTINOMYCIN [Suspect]
     Active Substance: DACTINOMYCIN
     Indication: Alveolar rhabdomyosarcoma
     Dosage: SIX COURSES WITH AN INTERVAL OF 3 WEEKS BETWEEN EACH COURSE
     Route: 065

REACTIONS (2)
  - Mallory-Weiss syndrome [Unknown]
  - Dyspepsia [Unknown]
